FAERS Safety Report 6464792-2 (Version None)
Quarter: 2009Q4

REPORT INFORMATION
  Report Type: 
  Country: None (occurrence: None)
  Receive Date: 20091201
  Receipt Date: 20091124
  Transmission Date: 20100525
  Serious: Yes (Hospitalization)
  Sender: FDA-Public Use
  Company Number: PHEH2009US14489

PATIENT
  Sex: Female

DRUGS (1)
  1. EXJADE [Suspect]
     Indication: MYELODYSPLASTIC SYNDROME
     Dosage: 1500, DAILY
     Route: 048
     Dates: start: 20081117, end: 20091028

REACTIONS (2)
  - ANAEMIA OF MALIGNANT DISEASE [None]
  - CEREBROVASCULAR ACCIDENT [None]
